FAERS Safety Report 8212726-2 (Version None)
Quarter: 2012Q1

REPORT INFORMATION
  Report Type: 
  Country: None (occurrence: None)
  Receive Date: 20120315
  Receipt Date: 20120307
  Transmission Date: 20120608
  Serious: Yes (Hospitalization, Other)
  Sender: FDA-Public Use
  Company Number: JP-MERCK-1202USA03157

PATIENT
  Age: 40 Year
  Sex: Female
  Weight: 46 kg

DRUGS (13)
  1. CHLOR-TRIMETON [Suspect]
     Indication: CHEMOTHERAPY
     Route: 041
     Dates: start: 20120113, end: 20120117
  2. OXALIPLATIN [Suspect]
     Indication: CHEMOTHERAPY
     Route: 041
     Dates: start: 20120113, end: 20120113
  3. DECADRON PHOSPHATE [Suspect]
     Indication: CHEMOTHERAPY
     Route: 041
     Dates: start: 20120113, end: 20120113
  4. FLUOROURACIL [Suspect]
     Route: 041
     Dates: start: 20120114, end: 20120114
  5. LEVOLEUCOVORIN CALCIUM [Suspect]
     Route: 041
     Dates: start: 20120113, end: 20120113
  6. SEROTONE [Suspect]
     Indication: CHEMOTHERAPY
     Route: 041
     Dates: start: 20120115, end: 20120117
  7. FLUOROURACIL [Suspect]
     Indication: CHEMOTHERAPY
     Route: 041
     Dates: start: 20120113, end: 20120113
  8. EMEND [Suspect]
     Indication: CHEMOTHERAPY
     Route: 048
     Dates: start: 20120113, end: 20120113
  9. EMEND [Suspect]
     Route: 048
     Dates: start: 20120114, end: 20120115
  10. ALOXI [Concomitant]
     Indication: CHEMOTHERAPY
     Route: 041
     Dates: start: 20120113, end: 20120113
  11. FLUOROURACIL [Suspect]
     Route: 041
     Dates: start: 20120114, end: 20120115
  12. LEVOLEUCOVORIN CALCIUM [Suspect]
     Indication: CHEMOTHERAPY
     Route: 041
     Dates: start: 20120114, end: 20120114
  13. FLUOROURACIL [Suspect]
     Route: 041
     Dates: start: 20120113, end: 20120114

REACTIONS (2)
  - BONE PAIN [None]
  - NEUTROPENIA [None]
